FAERS Safety Report 25779988 (Version 2)
Quarter: 2025Q4

REPORT INFORMATION
  Report Type: Report from Study
  Country: US (occurrence: US)
  Receive Date: 20250909
  Receipt Date: 20251116
  Transmission Date: 20260119
  Serious: Yes (Other)
  Sender: ABBVIE
  Company Number: US-ABBVIE-6450089

PATIENT
  Age: 87 Year
  Sex: Male

DRUGS (2)
  1. VENCLEXTA [Suspect]
     Active Substance: VENETOCLAX
     Indication: Chronic myelomonocytic leukaemia
     Dosage: TAKE ONE 50 MILLIGRAM TABLET WITH TWO 10 MILLIGRAM TABLET (70 MILLIGRAMS TOTAL) BY MOUTH ONCE DAI...
     Route: 048
     Dates: start: 20250820
  2. VENCLEXTA [Suspect]
     Active Substance: VENETOCLAX
     Indication: Chronic myelomonocytic leukaemia
     Dosage: TAKE ONE 50 MILLIGRAM TABLET WITH TWO 10 MILLIGRAM TABLET (70 MILLIGRAMS TOTAL) BY MOUTH ONCE DAI...
     Route: 048
     Dates: start: 20250902

REACTIONS (3)
  - Transfusion [Unknown]
  - Asthenia [Unknown]
  - Platelet transfusion [Unknown]

NARRATIVE: CASE EVENT DATE: 20250901
